FAERS Safety Report 7375302-X (Version None)
Quarter: 2011Q1

REPORT INFORMATION
  Report Type: 
  Country: None (occurrence: None)
  Receive Date: 20110325
  Receipt Date: 20110316
  Transmission Date: 20110831
  Serious: No
  Sender: FDA-Public Use
  Company Number: AU-ACTELION-A-CH2010-38514

PATIENT
  Sex: Male
  Weight: 79.8 kg

DRUGS (3)
  1. SILDENAFIL [Concomitant]
  2. TRACLEER [Suspect]
     Indication: PULMONARY ARTERIAL HYPERTENSION
     Dosage: 125 MG, BID
     Route: 048
     Dates: start: 20080323
  3. WARFARIN [Concomitant]

REACTIONS (2)
  - PREGNANCY OF PARTNER [None]
  - NORMAL NEWBORN [None]
